FAERS Safety Report 14163360 (Version 1)
Quarter: 2017Q4

REPORT INFORMATION
  Report Type: Report from Study
  Country: US (occurrence: US)
  Receive Date: 20171106
  Receipt Date: 20171106
  Transmission Date: 20180321
  Serious: Yes (Other)
  Sender: FDA-Public Use
  Company Number: US-MYLANLABS-2017M1068749

PATIENT
  Age: 18 Year
  Sex: Female

DRUGS (1)
  1. KETAMINE [Suspect]
     Active Substance: KETAMINE
     Indication: PRODUCT USED FOR UNKNOWN INDICATION
     Route: 065

REACTIONS (5)
  - Dysuria [Unknown]
  - Biliary dilatation [Unknown]
  - Bladder hypertrophy [Unknown]
  - Drug abuse [Unknown]
  - Abdominal pain upper [Unknown]
